FAERS Safety Report 20045891 (Version 1)
Quarter: 2021Q4

REPORT INFORMATION
  Report Type: Spontaneous
  Country: US (occurrence: None)
  Receive Date: 20211108
  Receipt Date: 20211108
  Transmission Date: 20220303
  Serious: Yes (Hospitalization)
  Sender: FDA-Public Use
  Company Number: None

PATIENT
  Age: 71 Year
  Sex: Male
  Weight: 109.35 kg

DRUGS (16)
  1. CASIRIVIMAB\IMDEVIMAB [Suspect]
     Active Substance: CASIRIVIMAB\IMDEVIMAB
     Indication: COVID-19
     Dosage: OTHER FREQUENCY : ONCE;?
     Route: 042
     Dates: start: 20211101, end: 20211101
  2. LOSARTAN [Concomitant]
     Active Substance: LOSARTAN
  3. LEVOTHYROXINE [Concomitant]
     Active Substance: LEVOTHYROXINE
  4. potassium chloride ER 10 mEq [Concomitant]
  5. fenofibrate nanocrystallized 48mg [Concomitant]
  6. ROSUVASTATIN [Concomitant]
     Active Substance: ROSUVASTATIN
  7. WARFARIN [Concomitant]
     Active Substance: WARFARIN
  8. FUROSEMIDE [Concomitant]
     Active Substance: FUROSEMIDE
  9. HYDRALAZINE HYDROCHLORIDE [Concomitant]
     Active Substance: HYDRALAZINE HYDROCHLORIDE
  10. LORATADINE\PSEUDOEPHEDRINE SULFATE [Concomitant]
     Active Substance: LORATADINE\PSEUDOEPHEDRINE SULFATE
  11. CARVEDILOL [Concomitant]
     Active Substance: CARVEDILOL
  12. ALBUTEROL [Concomitant]
     Active Substance: ALBUTEROL
  13. BUDESONIDE [Concomitant]
     Active Substance: BUDESONIDE
  14. formoterol fumarate 20 mcg/2ml [Concomitant]
  15. AMLODIPINE [Concomitant]
     Active Substance: AMLODIPINE BESYLATE
  16. FINASTERIDE [Concomitant]
     Active Substance: FINASTERIDE

REACTIONS (3)
  - Heart rate increased [None]
  - Atrial fibrillation [None]
  - Sinus bradycardia [None]

NARRATIVE: CASE EVENT DATE: 20211102
